FAERS Safety Report 21448118 (Version 1)
Quarter: 2022Q4

REPORT INFORMATION
  Report Type: Spontaneous
  Country: US (occurrence: None)
  Receive Date: 20221011
  Receipt Date: 20221011
  Transmission Date: 20230113
  Serious: Yes (Hospitalization)
  Sender: FDA-Public Use
  Company Number: None

PATIENT
  Age: 89 Year
  Sex: Female
  Weight: 61.8 kg

DRUGS (1)
  1. REVLIMID [Suspect]
     Active Substance: LENALIDOMIDE
     Indication: Plasma cell myeloma
     Dosage: FREQUENCY : 3 TIMES A WEEK;?
     Route: 048
     Dates: start: 20211023, end: 20221008

REACTIONS (2)
  - Myocardial infarction [None]
  - Therapy cessation [None]

NARRATIVE: CASE EVENT DATE: 20221008
